FAERS Safety Report 8867906 (Version 1)
Quarter: 2012Q4

REPORT INFORMATION
  Report Type: 
  Country: US (occurrence: US)
  Receive Date: 20121026
  Receipt Date: 20121026
  Transmission Date: 20130627
  Serious: No
  Sender: FDA-Public Use
  Company Number: US-AMGEN-USASP2012040792

PATIENT
  Age: 61 Year
  Sex: Female
  Weight: 77.1 kg

DRUGS (11)
  1. ENBREL [Suspect]
     Indication: PSORIATIC ARTHROPATHY
     Dosage: 50 mg/ml, qwk SYR (4Doses/PK)
     Route: 058
  2. SINGULAIR [Concomitant]
     Dosage: 10 mg, UNK
     Route: 048
  3. FOLIC ACID [Concomitant]
     Dosage: 1 mg, UNK
     Route: 048
  4. LEVOTHYROXIN [Concomitant]
     Dosage: 100 mug, UNK
     Route: 048
  5. METHOTREXATE [Concomitant]
     Dosage: 50 mg, UNK
  6. FISH OIL [Concomitant]
     Dosage: UNK
     Route: 048
  7. BIOTIN [Concomitant]
     Dosage: UNK
     Route: 048
  8. VESICARE [Concomitant]
     Dosage: 5 mg, UNK
     Route: 048
  9. VITAMIN D3 [Concomitant]
     Dosage: UNK
     Route: 048
  10. VITAMIN B6 [Concomitant]
     Dosage: 50 mg, UNK
     Route: 048
  11. PROBIOTIC [Concomitant]
     Dosage: UNK
     Route: 048

REACTIONS (1)
  - Injection site bruising [Unknown]
